FAERS Safety Report 5934148-7 (Version None)
Quarter: 2008Q4

REPORT INFORMATION
  Report Type: 
  Country: None (occurrence: None)
  Receive Date: 20081029
  Receipt Date: 20081024
  Transmission Date: 20090506
  Serious: Yes (Hospitalization)
  Sender: FDA-Public Use
  Company Number: A0753979A

PATIENT
  Age: 52 Year
  Sex: Female
  Weight: 118.2 kg

DRUGS (5)
  1. AVANDIA [Suspect]
     Indication: DIABETES MELLITUS
     Dosage: 4MG TWICE PER DAY
     Route: 048
     Dates: start: 20040331
  2. GLUCOPHAGE [Concomitant]
  3. METFORMIN HYDROCHLORIDE [Concomitant]
  4. XANAX [Concomitant]
  5. EFFEXOR [Concomitant]

REACTIONS (4)
  - ARRHYTHMIA [None]
  - ATRIAL FIBRILLATION [None]
  - HYPERLIPIDAEMIA [None]
  - ISCHAEMIA [None]
